FAERS Safety Report 10064081 (Version 3)
Quarter: 2014Q2

REPORT INFORMATION
  Report Type: Spontaneous
  Country: GB (occurrence: GB)
  Receive Date: 20140408
  Receipt Date: 20140507
  Transmission Date: 20141212
  Serious: Yes (Hospitalization, Other)
  Sender: FDA-Public Use
  Company Number: 2014SP001182

PATIENT
  Age: 60 Year
  Sex: Female
  Weight: 55.4 kg

DRUGS (15)
  1. CISPLATIN [Suspect]
     Indication: NON-SMALL CELL LUNG CANCER
     Route: 042
     Dates: start: 20131203, end: 20131203
  2. CISPLATIN [Suspect]
     Indication: NON-SMALL CELL LUNG CANCER
     Route: 042
     Dates: start: 20140114, end: 20140114
  3. CISPLATIN [Suspect]
     Indication: NON-SMALL CELL LUNG CANCER
     Route: 042
     Dates: start: 20131224, end: 20131224
  4. PEMETREXED [Suspect]
     Indication: NON-SMALL CELL LUNG CANCER
     Route: 042
     Dates: start: 20131203, end: 20131203
  5. PEMETREXED [Suspect]
     Indication: NON-SMALL CELL LUNG CANCER
     Route: 042
     Dates: start: 20131224, end: 20131224
  6. PEMETREXED [Suspect]
     Indication: NON-SMALL CELL LUNG CANCER
     Route: 042
     Dates: start: 20140114, end: 20140114
  7. PEMETREXED [Suspect]
     Indication: NON-SMALL CELL LUNG CANCER
     Route: 041
     Dates: start: 20140114, end: 20140114
  8. CYANOCOBALAMIN [Suspect]
     Indication: NON-SMALL CELL LUNG CANCER
     Route: 030
     Dates: start: 20140114, end: 20140114
  9. HYDROCOBAMINE [Suspect]
     Indication: NON-SMALL CELL LUNG CANCER
     Dates: start: 20131203, end: 20131203
  10. HYDROCOBAMINE [Suspect]
     Indication: NON-SMALL CELL LUNG CANCER
     Route: 030
     Dates: start: 20140114, end: 20140114
  11. APREPITANT [Concomitant]
     Indication: NON-SMALL CELL LUNG CANCER
     Route: 048
     Dates: start: 20131203
  12. CYCLIZINE [Concomitant]
     Indication: NON-SMALL CELL LUNG CANCER
     Route: 048
     Dates: start: 20131203
  13. ONDANSETRON [Concomitant]
     Indication: NON-SMALL CELL LUNG CANCER
     Route: 048
     Dates: start: 20131203
  14. DEXAMETHASONE [Concomitant]
     Indication: NON-SMALL CELL LUNG CANCER
     Route: 048
     Dates: start: 20131203
  15. FOLINIC ACID [Concomitant]
     Indication: NON-SMALL CELL LUNG CANCER
     Route: 048
     Dates: start: 20131203

REACTIONS (8)
  - Capillary leak syndrome [Recovered/Resolved]
  - Rash generalised [Recovered/Resolved]
  - Swelling face [Recovered/Resolved]
  - Peripheral swelling [Recovered/Resolved]
  - Chest discomfort [Recovered/Resolved]
  - Nausea [Recovered/Resolved]
  - Vomiting [Recovered/Resolved]
  - Rash [Recovered/Resolved]
